FAERS Safety Report 9408613 (Version 2)
Quarter: 2013Q3

REPORT INFORMATION
  Report Type: Spontaneous
  Country: US (occurrence: US)
  Receive Date: 20130718
  Receipt Date: 20130824
  Transmission Date: 20140515
  Serious: Yes (Death)
  Sender: FDA-Public Use
  Company Number: US-MERCK-1307USA007863

PATIENT
  Sex: Male

DRUGS (3)
  1. INVANZ [Suspect]
     Dosage: 1 G, RECEIVED THE DRUG ON 24-FEB-2013, 25-FEB-2013 AND 26-FEB-2013
     Route: 042
     Dates: start: 20130224
  2. FAMOTIDINE [Concomitant]
     Dosage: UNK
  3. IPRATROPIUM BROMIDE [Concomitant]
     Dosage: UNK

REACTIONS (1)
  - Death [Fatal]
